FAERS Safety Report 10467691 (Version 1)
Quarter: 2014Q3

REPORT INFORMATION
  Report Type: Spontaneous
  Country: GB (occurrence: GB)
  Receive Date: 20140922
  Receipt Date: 20140922
  Transmission Date: 20150326
  Serious: Yes (Hospitalization)
  Sender: FDA-Public Use
  Company Number: GB-GLAXOSMITHKLINE-B1035238A

PATIENT
  Age: 77 Year
  Sex: Female

DRUGS (12)
  1. CIPROFLOXACIN. [Concomitant]
     Active Substance: CIPROFLOXACIN
  2. BISACODYL. [Concomitant]
     Active Substance: BISACODYL
  3. TIOTROPIUM BROMIDE [Concomitant]
     Active Substance: TIOTROPIUM BROMIDE
  4. FUROSEMIDE. [Concomitant]
     Active Substance: FUROSEMIDE
  5. SALBUTAMOL [Concomitant]
     Active Substance: ALBUTEROL
  6. NYSTAN [Concomitant]
     Active Substance: NYSTATIN
  7. CYCLIZINE [Concomitant]
     Active Substance: CYCLIZINE
  8. LEVOTHYROXINE [Concomitant]
     Active Substance: LEVOTHYROXINE
  9. OMEPRAZOLE. [Concomitant]
     Active Substance: OMEPRAZOLE
  10. PARACETAMOL [Concomitant]
     Active Substance: ACETAMINOPHEN
  11. ROPINIROLE. [Suspect]
     Active Substance: ROPINIROLE
     Indication: RESTLESS LEGS SYNDROME
     Route: 048
  12. LACTULOSE. [Concomitant]
     Active Substance: LACTULOSE

REACTIONS (1)
  - Choreoathetosis [Recovered/Resolved]
